FAERS Safety Report 21097149 (Version 1)
Quarter: 2022Q3

REPORT INFORMATION
  Report Type: Other
  Country: None (occurrence: JP)
  Receive Date: 20220719
  Receipt Date: 20220719
  Transmission Date: 20221027
  Serious: Yes (Hospitalization, Other)
  Sender: FDA-Public Use
  Company Number: JP-Caplin Steriles Limited-2130987

PATIENT
  Age: 86 Year
  Sex: Male

DRUGS (9)
  1. VERAPAMIL HYDROCHLORIDE [Suspect]
     Active Substance: VERAPAMIL HYDROCHLORIDE
     Indication: Atrial flutter
     Route: 065
  2. CARVEDILOL [Suspect]
     Active Substance: CARVEDILOL
     Route: 065
  3. APIXABAN [Concomitant]
     Active Substance: APIXABAN
  4. LOSARTAN POTASSIUM [Concomitant]
     Active Substance: LOSARTAN POTASSIUM
  5. VONOPRAZAN FUMARATE [Concomitant]
     Active Substance: VONOPRAZAN FUMARATE
  6. BICALUTAMIDE [Concomitant]
     Active Substance: BICALUTAMIDE
  7. MIRABEGRON [Concomitant]
     Active Substance: MIRABEGRON
  8. CELECOXIB [Concomitant]
     Active Substance: CELECOXIB
  9. BIFIDOBACTERIUM SPP. [Concomitant]
     Active Substance: BIFIDOBACTERIUM SPP.

REACTIONS (2)
  - BRASH syndrome [Unknown]
  - Cardiac amyloidosis [Unknown]
